FAERS Safety Report 21964764 (Version 4)
Quarter: 2023Q1

REPORT INFORMATION
  Report Type: Report from Study
  Country: BE (occurrence: BE)
  Receive Date: 20230207
  Receipt Date: 20230328
  Transmission Date: 20230417
  Serious: Yes (Hospitalization)
  Sender: FDA-Public Use
  Company Number: BE-GENMAB-2023-00182

PATIENT
  Age: 35 Year
  Sex: Female
  Weight: 58 kg

DRUGS (45)
  1. TISOTUMAB VEDOTIN [Suspect]
     Active Substance: TISOTUMAB VEDOTIN
     Indication: Cervix carcinoma
     Dosage: 2 MILLIGRAM/KILOGRAM, 1Q3W
     Route: 042
     Dates: start: 20221223, end: 20230113
  2. TISOTUMAB VEDOTIN [Suspect]
     Active Substance: TISOTUMAB VEDOTIN
     Dosage: 1.3 MILLIGRAM/KILOGRAM, 1Q3W
     Route: 042
     Dates: start: 20230209
  3. CARBOPLATIN [Suspect]
     Active Substance: CARBOPLATIN
     Indication: Cervix carcinoma
     Dosage: 5AUC, 1Q3W
     Route: 042
     Dates: start: 20221223, end: 20230113
  4. PEMBROLIZUMAB [Suspect]
     Active Substance: PEMBROLIZUMAB
     Indication: Cervix carcinoma
     Dosage: 200 MILLIGRAM, 1Q3W
     Route: 042
     Dates: start: 20221223
  5. BEVACIZUMAB [Suspect]
     Active Substance: BEVACIZUMAB
     Indication: Cervix carcinoma
     Dosage: 15 MILLIGRAM/KILOGRAM, 1Q3W
     Route: 042
     Dates: start: 20221223
  6. DAFALGAN [Concomitant]
     Active Substance: ACETAMINOPHEN
     Indication: Flank pain
     Dosage: 1 GRAM, PRN
     Route: 048
     Dates: start: 202209, end: 20230119
  7. MORPHINE SULFATE [Concomitant]
     Active Substance: MORPHINE SULFATE
     Indication: Flank pain
     Dosage: 10 MILLIGRAM, PRN
     Route: 048
     Dates: start: 20221130, end: 20230119
  8. LORMETAZEPAM [Concomitant]
     Active Substance: LORMETAZEPAM
     Indication: Insomnia
     Dosage: 1 MILLIGRAM, QD
     Route: 048
     Dates: start: 202209
  9. PANTOMED [DEXPANTHENOL] [Concomitant]
     Indication: Prophylaxis
     Dosage: 40 MILLIGRAM, BID
     Route: 048
     Dates: start: 202209
  10. PANTOMED [DEXPANTHENOL] [Concomitant]
     Indication: Radiation oesophagitis
     Dosage: 40 MILLIGRAM, BID
     Route: 042
     Dates: start: 20230103, end: 20230105
  11. PANTOMED [DEXPANTHENOL] [Concomitant]
     Indication: Radiation oesophagitis
     Dosage: 40 MILLIGRAM, PRN
     Route: 042
     Dates: start: 20230107, end: 20230112
  12. PANTOMED [DEXPANTHENOL] [Concomitant]
     Dosage: 40 MILLIGRAM, QD
     Route: 042
     Dates: start: 20230121, end: 20230122
  13. ALIZAPRIDE HYDROCHLORIDE [Concomitant]
     Active Substance: ALIZAPRIDE HYDROCHLORIDE
     Indication: Nausea
     Dosage: 50 MILLIGRAM, PRN
     Route: 048
     Dates: start: 20221202, end: 20230112
  14. ALIZAPRIDE HYDROCHLORIDE [Concomitant]
     Active Substance: ALIZAPRIDE HYDROCHLORIDE
     Indication: Radiation oesophagitis
     Dosage: 50 MILLIGRAM, BID
     Route: 042
     Dates: start: 20230103, end: 20230103
  15. ALIZAPRIDE HYDROCHLORIDE [Concomitant]
     Active Substance: ALIZAPRIDE HYDROCHLORIDE
     Indication: Radiation oesophagitis
     Dosage: 50 MILLIGRAM, QD
     Route: 042
     Dates: start: 20230108, end: 20230109
  16. ALIZAPRIDE HYDROCHLORIDE [Concomitant]
     Active Substance: ALIZAPRIDE HYDROCHLORIDE
     Dosage: 50 MILLIGRAM, PRN
     Route: 042
     Dates: start: 20230119, end: 20230123
  17. PROGYNOVA [ESTRADIOL] [Concomitant]
     Indication: Prophylaxis
     Dosage: 1 MILLIGRAM, QD
     Route: 048
     Dates: start: 202208
  18. MOVICOL [Concomitant]
     Active Substance: POLYETHYLENE GLYCOL 3350\POTASSIUM CHLORIDE\SODIUM BICARBONATE\SODIUM CHLORIDE
     Indication: Constipation
     Dosage: 13.7 GRAM, PRN
     Route: 048
     Dates: start: 202212, end: 20230208
  19. LYRICA [Concomitant]
     Active Substance: PREGABALIN
     Indication: Flank pain
     Dosage: 300 MILLIGRAM, BID
     Route: 048
     Dates: start: 20221212, end: 20230103
  20. LYRICA [Concomitant]
     Active Substance: PREGABALIN
     Dosage: 525 MILLIGRAM, QD
     Route: 048
     Dates: start: 20230104, end: 20230107
  21. LYRICA [Concomitant]
     Active Substance: PREGABALIN
     Dosage: 450 MILLIGRAM, QD
     Route: 048
     Dates: start: 20230108, end: 20230127
  22. LYRICA [Concomitant]
     Active Substance: PREGABALIN
     Dosage: 150 MILLIGRAM, BID
     Route: 048
     Dates: start: 20230128
  23. FENTANYL [Concomitant]
     Active Substance: FENTANYL
     Indication: Flank pain
     Dosage: 25 MICROGRAM, EVERY 3 DAYS
     Route: 062
     Dates: start: 20221225, end: 20230227
  24. SYNGEL [Concomitant]
     Indication: Radiation oesophagitis
     Dosage: 5 MILLILITER, PRN
     Route: 048
     Dates: start: 20230103
  25. SYNGEL [Concomitant]
     Indication: Radiation oesophagitis
  26. ACETAMINOPHEN [Concomitant]
     Active Substance: ACETAMINOPHEN
     Indication: Radiation oesophagitis
     Dosage: 1 GRAM, PRN
     Route: 042
     Dates: start: 20230102, end: 20230105
  27. ACETAMINOPHEN [Concomitant]
     Active Substance: ACETAMINOPHEN
     Indication: Radiation oesophagitis
     Dosage: 1 GRAM, PRN
     Route: 042
     Dates: start: 20230107, end: 20230111
  28. ACTOSOLV [Concomitant]
     Indication: Prophylaxis
     Dosage: 40000 INTERNATIONAL UNIT, QD
     Route: 042
     Dates: start: 20230104, end: 20230104
  29. ONDANSETRON [Concomitant]
     Active Substance: ONDANSETRON
     Indication: Radiation oesophagitis
     Dosage: 8 MILLIGRAM, PRN
     Route: 042
     Dates: start: 20230107, end: 20230112
  30. ONDANSETRON [Concomitant]
     Active Substance: ONDANSETRON
     Dosage: 8 MILLIGRAM, PRN
     Route: 048
     Dates: start: 20230111, end: 20230114
  31. ONDANSETRON [Concomitant]
     Active Substance: ONDANSETRON
     Dosage: 8 MILLIGRAM, PRN
     Route: 042
     Dates: start: 20230120, end: 20230120
  32. MORPHINE [Concomitant]
     Active Substance: MORPHINE
     Indication: Radiation oesophagitis
     Dosage: 5 MILLIGRAM, PRN
     Route: 058
     Dates: start: 20230110, end: 20230111
  33. TRAMADOL HYDROCHLORIDE [Concomitant]
     Active Substance: TRAMADOL HYDROCHLORIDE
     Indication: Radiation oesophagitis
     Dosage: 100 MILLIGRAM, PRN
     Route: 042
     Dates: start: 20230108, end: 20230109
  34. TRAMADOL HYDROCHLORIDE [Concomitant]
     Active Substance: TRAMADOL HYDROCHLORIDE
     Indication: Radiation oesophagitis
     Dosage: 50 MILLIGRAM, PRN
     Route: 048
     Dates: start: 20230109, end: 20230109
  35. POTASSIUM CHLORIDE [Concomitant]
     Active Substance: POTASSIUM CHLORIDE
     Indication: Hypokalaemia
     Dosage: 40 MILLIEQUIVALENT, QD
     Route: 042
     Dates: start: 20230109, end: 20230109
  36. POTASSIUM CHLORIDE [Concomitant]
     Active Substance: POTASSIUM CHLORIDE
     Indication: Hypokalaemia
     Dosage: 20 MILLIEQUIVALENT, PRN
     Route: 042
     Dates: start: 20230120, end: 20230123
  37. ELECTROLYTES NOS [Concomitant]
     Active Substance: ELECTROLYTES NOS
     Indication: Radiation oesophagitis
     Dosage: 1000 MILLILITER, PRN
     Route: 042
     Dates: start: 20230119, end: 20230123
  38. PLATELETS [Concomitant]
     Active Substance: HUMAN PLATELET, ALLOGENIC
     Indication: Thrombocytopenia
     Dosage: 1 UNIT, QD
     Route: 042
     Dates: start: 20230128, end: 20230128
  39. HUMAN RED BLOOD CELL [Concomitant]
     Active Substance: HUMAN RED BLOOD CELL
     Indication: Anaemia
     Dosage: 1 UNIT, QD
     Route: 042
     Dates: start: 20230128, end: 20230128
  40. SOLU-MEDROL [Concomitant]
     Active Substance: METHYLPREDNISOLONE SODIUM SUCCINATE
     Indication: Radiation oesophagitis
     Dosage: 40 MILLIGRAM, QD
     Route: 042
     Dates: start: 20230120, end: 20230122
  41. LEVOFLOXACIN [Concomitant]
     Active Substance: LEVOFLOXACIN
     Indication: Radiation oesophagitis
     Dosage: 500 MILLIGRAM, QD
     Route: 042
     Dates: start: 20230120, end: 20230122
  42. LEVOFLOXACIN [Concomitant]
     Active Substance: LEVOFLOXACIN
     Dosage: 500 MILLIGRAM, QD
     Route: 048
     Dates: start: 20230123, end: 20230124
  43. ULTRA K [Concomitant]
     Indication: Hypokalaemia
     Dosage: 15 MILLILITER, TID
     Route: 048
     Dates: start: 20230123
  44. VITAPANTOL [Concomitant]
     Indication: Epistaxis
     Dosage: 1 APPLICATION, PRN
     Route: 045
     Dates: start: 20230113
  45. MOTILIUM [Concomitant]
     Active Substance: DOMPERIDONE
     Indication: Nausea
     Dosage: 10 MILLIGRAM, PRN
     Route: 048
     Dates: start: 20230113, end: 20230209

REACTIONS (1)
  - Febrile neutropenia [Recovered/Resolved]

NARRATIVE: CASE EVENT DATE: 20230127
